FAERS Safety Report 18272869 (Version 1)
Quarter: 2020Q3

REPORT INFORMATION
  Report Type: Spontaneous
  Country: US (occurrence: US)
  Receive Date: 20200605
  Receipt Date: 20200605
  Transmission Date: 20201103
  Serious: No
  Sender: FDA-Public Use
  Company Number: None

PATIENT
  Age: 1 Decade
  Sex: Female

DRUGS (1)
  1. DOXYCYLINE HYCLATE [Suspect]
     Active Substance: DOXYCYCLINE HYCLATE
     Indication: COVID-19
     Route: 048
     Dates: start: 2020

REACTIONS (4)
  - Ageusia [None]
  - Off label use [None]
  - Emotional disorder [None]
  - Anosmia [None]
